FAERS Safety Report 13203559 (Version 1)
Quarter: 2017Q1

REPORT INFORMATION
  Report Type: Spontaneous
  Country: FR (occurrence: FR)
  Receive Date: 20170209
  Receipt Date: 20170209
  Transmission Date: 20170428
  Serious: Yes (Other)
  Sender: FDA-Public Use
  Company Number: FR-009507513-1702FRA000986

PATIENT
  Age: 80 Year
  Sex: Male

DRUGS (3)
  1. ESCITALOPRAM [Concomitant]
     Active Substance: ESCITALOPRAM OXALATE
  2. SINEMET [Suspect]
     Active Substance: CARBIDOPA\LEVODOPA
     Indication: PARKINSON^S DISEASE
     Dosage: 500 MG (100 MG X 2:IN THE MORNING AND AT MIDDAY AND 100 MG IN THE EVENING)
     Route: 048
     Dates: start: 2012, end: 20170109
  3. SINEMET [Suspect]
     Active Substance: CARBIDOPA\LEVODOPA
     Dosage: 250MG: IN THE MORNING AND AT MIDDAY, TO 100 MG AT 4PM AND EVENING
     Route: 048
     Dates: start: 20170112

REACTIONS (8)
  - Fall [Unknown]
  - Malaise [Unknown]
  - Hypersomnia [Unknown]
  - Product use issue [Unknown]
  - Somnolence [Unknown]
  - Musculoskeletal stiffness [Unknown]
  - Paralysis [Unknown]
  - Pyrexia [Unknown]

NARRATIVE: CASE EVENT DATE: 20170109
